FAERS Safety Report 19733833 (Version 3)
Quarter: 2021Q3

REPORT INFORMATION
  Report Type: Report from Study
  Country: US (occurrence: US)
  Receive Date: 20210824
  Receipt Date: 20210930
  Transmission Date: 20211014
  Serious: Yes (Hospitalization, Other)
  Sender: FDA-Public Use
  Company Number: US-ACADIA PHARMACEUTICALS INC.-ACA-2021-PIM-002816

PATIENT
  Age: 77 Year
  Sex: Male

DRUGS (7)
  1. VITAMIN C [Concomitant]
     Active Substance: ASCORBIC ACID
     Dosage: 500 MILLIGRAM
  2. VITAMIN D3 [Concomitant]
     Active Substance: CHOLECALCIFEROL
     Dosage: 250 MICROGRAM
  3. CALCIUM [Concomitant]
     Active Substance: CALCIUM
     Dosage: 600 MILLIGRAM
  4. MULTIVITAMINS [VITAMINS NOS] [Concomitant]
     Active Substance: VITAMINS
  5. NIACIN. [Concomitant]
     Active Substance: NIACIN
     Dosage: 50 MILLIGRAM
  6. NUPLAZID [Suspect]
     Active Substance: PIMAVANSERIN TARTRATE
     Indication: PARKINSON^S DISEASE
     Dosage: 34 MILLIGRAM, QD
     Route: 048
  7. IRON [Concomitant]
     Active Substance: IRON
     Dosage: 18 MILLIGRAM

REACTIONS (3)
  - Dementia with Lewy bodies [Unknown]
  - Gastrointestinal haemorrhage [Unknown]
  - Seizure [Recovering/Resolving]

NARRATIVE: CASE EVENT DATE: 20210816
